FAERS Safety Report 5952160-9 (Version None)
Quarter: 2008Q4

REPORT INFORMATION
  Report Type: 
  Country: None (occurrence: None)
  Receive Date: 20081113
  Receipt Date: 20080724
  Transmission Date: 20090506
  Serious: No
  Sender: FDA-Public Use
  Company Number: A0739230A

PATIENT
  Sex: Male

DRUGS (5)
  1. COREG [Suspect]
     Indication: ATRIAL FIBRILLATION
     Dosage: 50MG TWICE PER DAY
     Route: 048
     Dates: start: 20070101
  2. WARFARIN SODIUM [Concomitant]
  3. LISINOPRIL [Concomitant]
  4. LIPITOR [Concomitant]
  5. AMIODARONE HCL [Concomitant]

REACTIONS (3)
  - BRADYCARDIA [None]
  - EJECTION FRACTION DECREASED [None]
  - INSOMNIA [None]
